FAERS Safety Report 15876838 (Version 3)
Quarter: 2019Q1

REPORT INFORMATION
  Report Type: Report from Study
  Country: None (occurrence: US)
  Receive Date: 20190127
  Receipt Date: 20190319
  Transmission Date: 20190417
  Serious: Yes (Hospitalization, Other)
  Sender: FDA-Public Use
  Company Number: US-ABBVIE-19K-163-2635663-00

PATIENT
  Sex: Female
  Weight: 90.8 kg

DRUGS (3)
  1. ZANAFLEX [Suspect]
     Active Substance: TIZANIDINE HYDROCHLORIDE
     Indication: PRODUCT USED FOR UNKNOWN INDICATION
     Route: 065
  2. HUMIRA [Suspect]
     Active Substance: ADALIMUMAB
     Indication: PSORIASIS
     Route: 058
  3. HUMIRA [Suspect]
     Active Substance: ADALIMUMAB
     Indication: PSORIATIC ARTHROPATHY

REACTIONS (12)
  - Gastroenteritis viral [Not Recovered/Not Resolved]
  - Inner ear disorder [Unknown]
  - Neuralgia [Unknown]
  - Blood pressure abnormal [Unknown]
  - Ankle fracture [Unknown]
  - Constipation [Unknown]
  - Dizziness [Unknown]
  - Psoriasis [Unknown]
  - Loss of consciousness [Unknown]
  - Skin hypertrophy [Unknown]
  - Drug hypersensitivity [Unknown]
  - Oedema peripheral [Unknown]
